FAERS Safety Report 9332602 (Version 2)
Quarter: 2013Q2

REPORT INFORMATION
  Report Type: Spontaneous
  Country: GB (occurrence: None)
  Receive Date: 20130603
  Receipt Date: 20130603
  Transmission Date: 20140414
  Serious: Yes (Other)
  Sender: FDA-Public Use
  Company Number: 2013161894

PATIENT
  Age: 64 Year
  Sex: Female

DRUGS (6)
  1. DALTEPARIN SODIUM [Suspect]
     Indication: MITRAL VALVE REPLACEMENT
     Route: 058
     Dates: start: 20130403, end: 20130410
  2. MIRTAZAPINE (MIRTAZAPINE) [Concomitant]
  3. IBANDRONIC ACID (IBANDRONIC ACID) [Concomitant]
  4. SIMVASTATIN (SIMVASTATIN) [Concomitant]
  5. FUROSEMIDE (FUROSEMIDE) [Concomitant]
  6. WARFARIN (WARFARIN) [Concomitant]

REACTIONS (3)
  - Contusion [None]
  - Malaise [None]
  - Pruritus [None]
